FAERS Safety Report 4371021-2 (Version None)
Quarter: 2004Q2

REPORT INFORMATION
  Report Type: 
  Country: None (occurrence: None)
  Receive Date: 20040601
  Receipt Date: 20040518
  Transmission Date: 20050107
  Serious: Yes (Hospitalization, Other)
  Sender: FDA-Public Use
  Company Number: JP-JNJFOC-20031205150

PATIENT
  Age: 44 Year
  Sex: Male
  Weight: 63.5 kg

DRUGS (9)
  1. REMICADE [Suspect]
     Indication: RHEUMATOID ARTHRITIS
     Dosage: 3 MG/KG, 1 IN 1 AS NECESSARY, INTRAVENOUS DRIP
     Route: 041
     Dates: start: 20031002, end: 20031002
  2. REMICADE [Suspect]
     Indication: RHEUMATOID ARTHRITIS
     Dosage: 3 MG/KG, 1 IN 1 AS NECESSARY, INTRAVENOUS DRIP
     Route: 041
     Dates: start: 20031106, end: 20031106
  3. REMICADE [Suspect]
     Indication: RHEUMATOID ARTHRITIS
     Dosage: 3 MG/KG, 1 IN 1 AS NECESSARY, INTRAVENOUS DRIP
     Route: 041
     Dates: start: 20040225, end: 20040225
  4. REMICADE [Suspect]
     Indication: RHEUMATOID ARTHRITIS
     Dosage: 3 MG/KG, 1 IN 1 AS NECESSARY, INTRAVENOUS DRIP
     Route: 041
     Dates: start: 20030918
  5. RHEUMATREX [Concomitant]
  6. PREDNISOONE (PREDNISOLONE) TABLETS [Concomitant]
  7. AZULFIDINE EN (SULFASALAZINE) TABLETS [Concomitant]
  8. LOXONIN (LOXOPROFEN SODIUM) TABLETS [Concomitant]
  9. MILTAX (KETOPROFEN) [Concomitant]

REACTIONS (7)
  - CHEST X-RAY ABNORMAL [None]
  - HEAD DISCOMFORT [None]
  - HYPERCHOLESTEROLAEMIA [None]
  - MALAISE [None]
  - PULMONARY TUBERCULOSIS [None]
  - RHEUMATOID ARTHRITIS [None]
  - TUBERCULOUS PLEURISY [None]
